FAERS Safety Report 12467115 (Version 1)
Quarter: 2016Q2

REPORT INFORMATION
  Report Type: Spontaneous
  Country: US (occurrence: US)
  Receive Date: 20160615
  Receipt Date: 20160615
  Transmission Date: 20160815
  Serious: No
  Sender: FDA-Public Use
  Company Number: US-BIOGEN-2016BI00247827

PATIENT
  Sex: Male

DRUGS (2)
  1. TYSABRI [Suspect]
     Active Substance: NATALIZUMAB
     Indication: MULTIPLE SCLEROSIS
     Route: 065
     Dates: start: 20120529, end: 20121115
  2. TYSABRI [Suspect]
     Active Substance: NATALIZUMAB
     Dates: start: 20151026, end: 20160125

REACTIONS (5)
  - Gait disturbance [Unknown]
  - Dysstasia [Unknown]
  - Feeling abnormal [Unknown]
  - Tremor [Recovered/Resolved]
  - Nervous system disorder [Recovered/Resolved]
